FAERS Safety Report 14131853 (Version 2)
Quarter: 2017Q4

REPORT INFORMATION
  Report Type: Spontaneous
  Country: GB (occurrence: GB)
  Receive Date: 20171026
  Receipt Date: 20171030
  Transmission Date: 20180321
  Serious: Yes (Hospitalization, Other)
  Sender: FDA-Public Use
  Company Number: GB-MYLANLABS-2017M1063019

PATIENT
  Age: 47 Year
  Sex: Male

DRUGS (3)
  1. CLOZARIL [Suspect]
     Active Substance: CLOZAPINE
     Dosage: 700 MG, UNK
     Route: 048
     Dates: start: 201710
  2. CLOZARIL [Suspect]
     Active Substance: CLOZAPINE
     Indication: SCHIZOPHRENIA
     Dosage: UNK
     Route: 048
     Dates: start: 20120127, end: 20171003
  3. CLOZARIL [Suspect]
     Active Substance: CLOZAPINE
     Dosage: 400 MG, UNK
     Route: 048
     Dates: start: 201710

REACTIONS (10)
  - Atrial flutter [Recovered/Resolved]
  - Atrial fibrillation [Recovering/Resolving]
  - Mental impairment [Unknown]
  - Arrhythmia [Recovering/Resolving]
  - Hypotension [Not Recovered/Not Resolved]
  - Adverse event [Unknown]
  - Malaise [Recovering/Resolving]
  - Cardiomyopathy [Recovering/Resolving]
  - Tachycardia [Not Recovered/Not Resolved]
  - Mental disorder [Unknown]

NARRATIVE: CASE EVENT DATE: 201710
